FAERS Safety Report 5741381-6 (Version None)
Quarter: 2008Q2

REPORT INFORMATION
  Report Type: 
  Country: None (occurrence: None)
  Receive Date: 20080514
  Receipt Date: 20080422
  Transmission Date: 20081010
  Serious: Yes (Hospitalization)
  Sender: FDA-Public Use
  Company Number: 2008EU000791

PATIENT
  Age: 74 Year
  Sex: Male

DRUGS (11)
  1. PROGRAF [Suspect]
     Dosage: 2 MG, BID, ORAL
     Route: 048
  2. CELLCEPT [Concomitant]
  3. LEVOTHYROXINE SODIUM [Concomitant]
  4. AMIODARONE HCL [Concomitant]
  5. ZESTRIL [Concomitant]
  6. FUROSEMIDE [Concomitant]
  7. COZAAR [Concomitant]
  8. ALLOPURINOL [Concomitant]
  9. ATORVASTATIN CALCIUM [Concomitant]
  10. PREVISCAN (FLUINDIONE) [Concomitant]
  11. FLEMOXINE (AMOXICILLIN) [Concomitant]

REACTIONS (7)
  - BLOOD CREATININE INCREASED [None]
  - DIABETIC KETOACIDOSIS [None]
  - DYSPHAGIA [None]
  - GENERAL PHYSICAL CONDITION ABNORMAL [None]
  - TYPE 1 DIABETES MELLITUS [None]
  - UNEVALUABLE EVENT [None]
  - WEIGHT DECREASED [None]
